FAERS Safety Report 5028617-4 (Version None)
Quarter: 2006Q2

REPORT INFORMATION
  Report Type: 
  Country: None (occurrence: None)
  Receive Date: 20060501
  Receipt Date: 20060223
  Transmission Date: 20061013
  Serious: No
  Sender: FDA-Public Use
  Company Number: 200610969US

PATIENT
  Age: 34 Year
  Sex: Male
  Weight: 7727 kg

DRUGS (1)
  1. TELITHROMYCIN [Suspect]
     Indication: SINUSITIS
     Dosage: 800 MG QD PO
     Route: 048
     Dates: start: 20060119, end: 20060123

REACTIONS (1)
  - HEPATIC ENZYME INCREASED [None]
